FAERS Safety Report 5737932-8 (Version None)
Quarter: 2008Q2

REPORT INFORMATION
  Report Type: 
  Country: None (occurrence: None)
  Receive Date: 20080514
  Receipt Date: 20080506
  Transmission Date: 20081010
  Serious: Yes (Hospitalization)
  Sender: FDA-Public Use
  Company Number: US-ALLERGAN-0805442US

PATIENT
  Age: 60 Year
  Sex: Female
  Weight: 108.84 kg

DRUGS (14)
  1. BOTOX [Suspect]
     Indication: MUSCLE SPASTICITY
     Dosage: UNK, SINGLE
     Route: 030
     Dates: start: 20080124, end: 20080124
  2. BOTOX [Suspect]
     Indication: MULTIPLE SCLEROSIS
  3. METFORMIN HCL [Concomitant]
     Dosage: 1000 MG, BID
     Route: 048
  4. BUPROPION HCL [Concomitant]
     Dosage: 150 MG, BID
     Route: 048
  5. LEXAPRO [Concomitant]
     Dosage: 20 MG, QD
     Route: 048
  6. BACLOFEN [Concomitant]
     Dosage: 20 MG, TID
     Route: 048
  7. BACLOFEN [Concomitant]
     Dosage: 40 MG, QHS
     Route: 048
  8. DIOVAN HCT [Concomitant]
     Dosage: UNK, QD
     Route: 048
  9. GABAPENTIN [Concomitant]
     Dosage: 300 MG, BID
     Route: 048
  10. GABAPENTIN [Concomitant]
     Dosage: 1200 MG, QHS
     Route: 048
  11. MIRAPEX [Concomitant]
     Dosage: 3 MG, QHS
     Route: 048
  12. PROPRANOLOL [Concomitant]
     Dosage: 50 MG, QHS
  13. LOTONEX [Concomitant]
     Dosage: 1 MG, QOD
  14. LIPITOR [Concomitant]
     Dosage: 20 MG, QHS

REACTIONS (4)
  - DIPLOPIA [None]
  - MULTIPLE SCLEROSIS [None]
  - MUSCULAR WEAKNESS [None]
  - SOMNOLENCE [None]
